FAERS Safety Report 9129056 (Version 1)
Quarter: 2013Q1

REPORT INFORMATION
  Report Type: Spontaneous
  Country: GB (occurrence: GB)
  Receive Date: 20130125
  Receipt Date: 20130125
  Transmission Date: 20140127
  Serious: Yes (Hospitalization, Other)
  Sender: FDA-Public Use
  Company Number: GB-B.I. PHARMACEUTICALS,INC./RIDGEFIELD-2013-UK-00069UK

PATIENT
  Age: 65 Year
  Sex: Male
  Weight: 85 kg

DRUGS (4)
  1. DABIGATRAN [Suspect]
     Indication: ATRIAL FIBRILLATION
     Route: 048
     Dates: start: 20121212, end: 20121225
  2. CANDESARTAN [Concomitant]
  3. FUROSEMIDE [Concomitant]
  4. SPIROLACTONE [Concomitant]

REACTIONS (2)
  - Renal failure acute [Recovered/Resolved]
  - Blood creatinine increased [Unknown]
